FAERS Safety Report 4752065-5 (Version None)
Quarter: 2005Q3

REPORT INFORMATION
  Report Type: 
  Country: None (occurrence: None)
  Receive Date: 20050822
  Receipt Date: 20050601
  Transmission Date: 20060218
  Serious: No
  Sender: FDA-Public Use
  Company Number: PHEH2005US06148

PATIENT
  Age: 79 Year
  Sex: Female

DRUGS (3)
  1. ZELNORM [Suspect]
     Indication: CONSTIPATION
     Dosage: 6 MG, BID, ORAL
     Route: 048
     Dates: start: 20050401
  2. MORPHINE [Suspect]
     Indication: BACK PAIN
  3. MIRALAX [Concomitant]

REACTIONS (2)
  - BACK PAIN [None]
  - DRUG INTERACTION [None]
